FAERS Safety Report 13433888 (Version 1)
Quarter: 2017Q2

REPORT INFORMATION
  Report Type: Spontaneous
  Country: US (occurrence: US)
  Receive Date: 20170413
  Receipt Date: 20170413
  Transmission Date: 20170830
  Serious: No
  Sender: FDA-Public Use
  Company Number: US-BAYER-2017-071048

PATIENT
  Age: 77 Year
  Sex: Male
  Weight: 70 kg

DRUGS (6)
  1. MIRALAX [Suspect]
     Active Substance: POLYETHYLENE GLYCOL 3350
     Indication: GASTROINTESTINAL DISORDER
     Dosage: 1 DF, QD
     Route: 048
  2. PRASUGREL. [Concomitant]
     Active Substance: PRASUGREL
  3. COQ10 [Concomitant]
     Active Substance: UBIDECARENONE
  4. A-C-D-VITAMIN [Concomitant]
  5. GINKO BILOBA [Concomitant]
     Active Substance: GINKGO
  6. PRILOSEC [Concomitant]
     Active Substance: OMEPRAZOLE MAGNESIUM

REACTIONS (2)
  - Product substitution [Unknown]
  - Drug ineffective [Unknown]
